FAERS Safety Report 13141966 (Version 1)
Quarter: 2017Q1

REPORT INFORMATION
  Report Type: Spontaneous
  Country: US (occurrence: US)
  Receive Date: 20170123
  Receipt Date: 20170123
  Transmission Date: 20170428
  Serious: Yes (Life-Threatening, Hospitalization)
  Sender: FDA-Public Use
  Company Number: None

PATIENT
  Age: 45 Year
  Sex: Male
  Weight: 92 kg

DRUGS (19)
  1. MOBIC [Concomitant]
     Active Substance: MELOXICAM
  2. FEXOFENADINE (ALLEGRA) [Concomitant]
  3. METOPROLOL TARTRATE (LOPRESSOR) [Concomitant]
  4. GLUCOPHAGE [Concomitant]
     Active Substance: METFORMIN HYDROCHLORIDE
  5. MULTIVITAMINS (DAILY MULTIVITAMIN TAB) [Concomitant]
  6. FISH OIL/OMEGA-3 FATTY ACIDS(FISH OIL OMEGA 3-6-9 1,000 MG-300 MG CAP) [Concomitant]
  7. EMPAGLIFLOZIN [Suspect]
     Active Substance: EMPAGLIFLOZIN
     Indication: TYPE 2 DIABETES MELLITUS
     Route: 048
     Dates: start: 20161007, end: 20170103
  8. VITAMIN B12 [Concomitant]
     Active Substance: CYANOCOBALAMIN
  9. ASCORBIC ACID. [Concomitant]
     Active Substance: ASCORBIC ACID
  10. CHOLECALCIFEROL [Concomitant]
     Active Substance: CHOLECALCIFEROL
  11. ROSUVASTATIN (CRESTOR) [Concomitant]
  12. ABILIFY [Concomitant]
     Active Substance: ARIPIPRAZOLE
  13. VITAMIN D3 [Concomitant]
     Active Substance: CHOLECALCIFEROL
  14. CYANOCOBALAMIN. [Concomitant]
     Active Substance: CYANOCOBALAMIN
  15. NOVOLOG SLIDING SCALE INSULIN GLARGINE [Concomitant]
  16. LISINOPRIL-HYDROCHLOROTHIAZIDE (PRINZIDE, ZESTORETIC) [Concomitant]
  17. TRADJENTA [Concomitant]
     Active Substance: LINAGLIPTIN
  18. FLUTICASONE (FLONASE) [Concomitant]
  19. PRILOSEC [Concomitant]
     Active Substance: OMEPRAZOLE MAGNESIUM

REACTIONS (5)
  - Vomiting [None]
  - Anion gap increased [None]
  - Dehydration [None]
  - Nausea [None]
  - Ketoacidosis [None]

NARRATIVE: CASE EVENT DATE: 20170103
